FAERS Safety Report 15753569 (Version 1)
Quarter: 2018Q4

REPORT INFORMATION
  Report Type: Spontaneous
  Country: GB (occurrence: GB)
  Receive Date: 20181222
  Receipt Date: 20181222
  Transmission Date: 20190205
  Serious: Yes (Other)
  Sender: FDA-Public Use
  Company Number: GB-TEVA-2018-GB-989447

PATIENT
  Sex: Female
  Weight: 60 kg

DRUGS (3)
  1. MORPHINE SULFATE. [Concomitant]
     Active Substance: MORPHINE SULFATE
     Indication: PAIN
  2. PAMIDRONATE DISODIUM ANHYDROUS [Suspect]
     Active Substance: PAMIDRONATE DISODIUM
     Indication: BONE LESION
     Dosage: 90 MG, QMO
  3. PAMIDRONATE DISODIUM ANHYDROUS [Suspect]
     Active Substance: PAMIDRONATE DISODIUM
     Indication: PAIN
     Route: 065

REACTIONS (1)
  - Impaired healing [Recovered/Resolved]
